FAERS Safety Report 7468405-2 (Version None)
Quarter: 2011Q2

REPORT INFORMATION
  Report Type: 
  Country: None (occurrence: None)
  Receive Date: 20110509
  Receipt Date: 20110505
  Transmission Date: 20111010
  Serious: Yes (Other)
  Sender: FDA-Public Use
  Company Number: CA-PFIZER INC-2011084529

PATIENT
  Age: 50 Year
  Sex: Male
  Weight: 112 kg

DRUGS (6)
  1. TOPAMAX [Concomitant]
     Dosage: UNK
  2. PREVACID [Concomitant]
     Dosage: UNK
  3. OXYCODONE HCL [Concomitant]
     Dosage: UNK
     Route: 065
  4. CILAZAPRIL [Concomitant]
     Dosage: UNK
  5. VARENICLINE TARTRATE [Suspect]
     Dosage: 1 MG, 2X/DAY
     Route: 048
  6. AVANDIA [Concomitant]
     Dosage: UNK

REACTIONS (3)
  - HYPERTENSION [None]
  - HEART RATE INCREASED [None]
  - BLOOD GLUCOSE INCREASED [None]
